FAERS Safety Report 5479333-6 (Version None)
Quarter: 2007Q4

REPORT INFORMATION
  Report Type: 
  Country: None (occurrence: None)
  Receive Date: 20071003
  Receipt Date: 20071003
  Transmission Date: 20080405
  Serious: No
  Sender: FDA-Public Use
  Company Number: None

PATIENT
  Age: 61 Year
  Sex: Female

DRUGS (1)
  1. ACTONEL [Suspect]
     Dosage: 35 MG WEEKLY ORAL
     Route: 048
     Dates: start: 20040501

REACTIONS (5)
  - ANAEMIA HAEMOLYTIC AUTOIMMUNE [None]
  - BLOOD IMMUNOGLOBULIN M ABNORMAL [None]
  - COLD AGGLUTININS POSITIVE [None]
  - NON-HODGKIN'S LYMPHOMA [None]
  - WALDENSTROM'S MACROGLOBULINAEMIA [None]
